FAERS Safety Report 25185429 (Version 1)
Quarter: 2025Q2

REPORT INFORMATION
  Report Type: Spontaneous
  Country: US (occurrence: US)
  Receive Date: 20250410
  Receipt Date: 20250410
  Transmission Date: 20250717
  Serious: No
  Sender: SANOFI AVENTIS
  Company Number: US-SA-2025SA100888

PATIENT
  Sex: Female

DRUGS (15)
  1. DUPIXENT [Suspect]
     Active Substance: DUPILUMAB
     Indication: Chronic obstructive pulmonary disease
     Dosage: 300 MG, QOW
     Route: 058
  2. BUDESONIDE [Concomitant]
     Active Substance: BUDESONIDE
  3. ALPRAZOLAM [Concomitant]
     Active Substance: ALPRAZOLAM
  4. ARFORMOTEROL [Concomitant]
     Active Substance: ARFORMOTEROL
  5. ASPIRIN [Concomitant]
     Active Substance: ASPIRIN
  6. BETADINE ANTISEPTIC [Concomitant]
  7. CITALOPRAM [Concomitant]
     Active Substance: CITALOPRAM
  8. HYDROCHLOROTHIAZIDE [Concomitant]
     Active Substance: HYDROCHLOROTHIAZIDE
  9. IBANDRONATE SODIUM [Concomitant]
     Active Substance: IBANDRONATE SODIUM
  10. LETROZOLE [Concomitant]
     Active Substance: LETROZOLE
  11. METOPROLOL SUCCINATE [Concomitant]
     Active Substance: METOPROLOL SUCCINATE
  12. PANTOPRAZOLE [Concomitant]
     Active Substance: PANTOPRAZOLE
  13. PREDNISONE [Concomitant]
     Active Substance: PREDNISONE
  14. THEOPHYLLINE [Concomitant]
     Active Substance: THEOPHYLLINE
  15. TORSEMIDE [Concomitant]
     Active Substance: TORSEMIDE

REACTIONS (7)
  - Abdominal distension [Not Recovered/Not Resolved]
  - Productive cough [Not Recovered/Not Resolved]
  - Wheezing [Not Recovered/Not Resolved]
  - Dyspnoea [Not Recovered/Not Resolved]
  - Back pain [Not Recovered/Not Resolved]
  - Diarrhoea [Not Recovered/Not Resolved]
  - Arthralgia [Not Recovered/Not Resolved]
